FAERS Safety Report 9404249 (Version 2)
Quarter: 2013Q4

REPORT INFORMATION
  Report Type: Spontaneous
  Country: US (occurrence: US)
  Receive Date: 20130717
  Receipt Date: 20131101
  Transmission Date: 20140711
  Serious: Yes (Other)
  Sender: FDA-Public Use
  Company Number: US-BAYER-2013-084270

PATIENT
  Age: 31 Year
  Sex: Female
  Weight: 61.22 kg

DRUGS (5)
  1. MIRENA [Suspect]
     Indication: CONTRACEPTION
     Dosage: 20 MCG/24HR, CONT
     Route: 015
     Dates: start: 20100324
  2. IMITREX [Concomitant]
     Indication: MIGRAINE
     Dosage: 100 MG, AS NEEDED
     Dates: start: 20120709
  3. PROVIGIL [Concomitant]
     Dosage: 200 MG,DAILY
     Dates: start: 20120709
  4. ZOLOFT [Concomitant]
     Dosage: 100 MG, 2 DAILY
     Dates: start: 20120709
  5. METHOTREXATE [Concomitant]

REACTIONS (11)
  - Uterine perforation [Not Recovered/Not Resolved]
  - Injury [Not Recovered/Not Resolved]
  - Abdominal pain lower [Not Recovered/Not Resolved]
  - Emotional distress [None]
  - Device difficult to use [None]
  - Pelvic pain [Not Recovered/Not Resolved]
  - Ectopic pregnancy [None]
  - Internal injury [Not Recovered/Not Resolved]
  - Anxiety [None]
  - Depression [None]
  - Drug ineffective [None]
